FAERS Safety Report 7432946-4 (Version None)
Quarter: 2011Q2

REPORT INFORMATION
  Report Type: 
  Country: None (occurrence: None)
  Receive Date: 20110422
  Receipt Date: 20110415
  Transmission Date: 20111010
  Serious: No
  Sender: FDA-Public Use
  Company Number: US-PFIZER INC-2011083562

PATIENT
  Sex: Female
  Weight: 47 kg

DRUGS (5)
  1. THYROXINE [Concomitant]
     Indication: THYROID DISORDER
  2. SIMVASTATIN [Concomitant]
     Indication: BLOOD CHOLESTEROL ABNORMAL
  3. FISH OIL [Concomitant]
  4. AMLODIPINE BESYLATE [Suspect]
     Indication: HYPERTENSION
     Dosage: 10 MG, 1X/DAY
     Route: 048
  5. CALCIUM [Concomitant]

REACTIONS (4)
  - RASH [None]
  - ACNE [None]
  - URTICARIA [None]
  - PRURITUS [None]
